FAERS Safety Report 9208900 (Version 1)
Quarter: 2013Q1

REPORT INFORMATION
  Report Type: Spontaneous
  Country: US (occurrence: None)
  Receive Date: 20120820
  Receipt Date: 20120820
  Transmission Date: 20140127
  Serious: Yes (Other)
  Sender: FDA-Public Use
  Company Number: WAES1112USA03274

PATIENT
  Age: 65 Year
  Sex: Male

DRUGS (7)
  1. VITAMINS (UNSPECIFIED) [Concomitant]
  2. INDERAL [Concomitant]
  3. ENALAPRIL MALEATE [Concomitant]
  4. PROSCAR [Suspect]
     Indication: PROSTATOMEGALY
     Route: 048
     Dates: start: 1995, end: 2003
  5. LEVOFLOXACIN [Concomitant]
  6. LORAZEPAM [Concomitant]
  7. OMEGA-3 MARINE TRIGLYCERIDES [Concomitant]

REACTIONS (1)
  - Breast cancer [None]
